FAERS Safety Report 6061865-3 (Version None)
Quarter: 2009Q1

REPORT INFORMATION
  Report Type: 
  Country: None (occurrence: None)
  Receive Date: 20090202
  Receipt Date: 20090121
  Transmission Date: 20090719
  Serious: Yes (Other)
  Sender: FDA-Public Use
  Company Number: PHEH2009US00558

PATIENT
  Sex: Female

DRUGS (3)
  1. ZADITOR [Suspect]
  2. WARFARIN SODIUM [Concomitant]
     Indication: PROPHYLAXIS
  3. ZIAC [Concomitant]
     Indication: BLOOD PRESSURE

REACTIONS (3)
  - ABNORMAL SENSATION IN EYE [None]
  - EYE HAEMORRHAGE [None]
  - OCULAR HYPERAEMIA [None]
